FAERS Safety Report 6824064-0 (Version None)
Quarter: 2010Q3

REPORT INFORMATION
  Report Type: 
  Country: None (occurrence: None)
  Receive Date: 20100708
  Receipt Date: 20070206
  Transmission Date: 20110219
  Serious: No
  Sender: FDA-Public Use
  Company Number: US-PFIZER INC-2006117182

PATIENT
  Sex: Male
  Weight: 66.68 kg

DRUGS (5)
  1. CHANTIX [Suspect]
     Indication: SMOKING CESSATION THERAPY
     Route: 048
     Dates: start: 20060801
  2. PAXIL [Concomitant]
     Route: 048
  3. ACYCLOVIR [Concomitant]
     Route: 048
  4. ACETYLSALICYLIC ACID [Concomitant]
     Route: 048
  5. CENTRUM [Concomitant]
     Route: 048

REACTIONS (7)
  - ABNORMAL DREAMS [None]
  - CONSTIPATION [None]
  - HYPERHIDROSIS [None]
  - HYPERTENSION [None]
  - NIGHTMARE [None]
  - SLEEP DISORDER [None]
  - THINKING ABNORMAL [None]
